FAERS Safety Report 11639821 (Version 2)
Quarter: 2016Q1

REPORT INFORMATION
  Report Type: Spontaneous
  Country: RU (occurrence: RU)
  Receive Date: 20151019
  Receipt Date: 20160210
  Transmission Date: 20160525
  Serious: Yes (Other)
  Sender: FDA-Public Use
  Company Number: RU-ACCORD-034600

PATIENT
  Age: 1 Year
  Sex: Male

DRUGS (5)
  1. ETOPOSIDE. [Suspect]
     Active Substance: ETOPOSIDE
     Indication: RETINOBLASTOMA
     Dosage: 4 CYCLES OF SYSTEMIC CHEMOTHERAPY
  2. VINCRISTINE [Suspect]
     Active Substance: VINCRISTINE
     Indication: RETINOBLASTOMA
     Dosage: SECOND-LINE CHEMOTHERAPY
  3. CYCLOPHOSPHAMIDE/CYCLOPHOSPHAMIDE MONOHYDRATE [Suspect]
     Active Substance: CYCLOPHOSPHAMIDE
     Indication: RETINOBLASTOMA
     Dosage: 4 CYCLES OF SYSTEMIC CHEMOTHERAPY AND SECOND-LINE CHEMOTHERAPY
  4. DOXORUBICIN [Suspect]
     Active Substance: DOXORUBICIN
     Indication: RETINOBLASTOMA
     Dosage: SECOND-LINE CHEMOTHERAPY
  5. CARBOPLATIN. [Suspect]
     Active Substance: CARBOPLATIN
     Indication: RETINOBLASTOMA
     Dosage: 4 CYCLES OF SYSTEMIC CHEMOTHERAPY

REACTIONS (2)
  - Vitreous haemorrhage [Recovering/Resolving]
  - Glaucoma [Unknown]
